FAERS Safety Report 5669309-8 (Version None)
Quarter: 2008Q1

REPORT INFORMATION
  Report Type: 
  Country: None (occurrence: None)
  Receive Date: 20080313
  Receipt Date: 20080313
  Transmission Date: 20080703
  Serious: Yes (Hospitalization, Disabling, Other)
  Sender: FDA-Public Use
  Company Number: None

PATIENT
  Age: 43 Year
  Sex: Female
  Weight: 52.1637 kg

DRUGS (1)
  1. PAXIL [Suspect]
     Indication: DEPRESSION
     Dosage: FORGOTTEN ONE PER DAY PO
     Route: 048
     Dates: start: 20021226, end: 20030113

REACTIONS (8)
  - AMNESIA [None]
  - CHEST PAIN [None]
  - COGNITIVE DISORDER [None]
  - CONVULSION [None]
  - IMPAIRED WORK ABILITY [None]
  - LOSS OF CONSCIOUSNESS [None]
  - TREMOR [None]
  - WEIGHT DECREASED [None]
